FAERS Safety Report 6525565-5 (Version None)
Quarter: 2009Q4

REPORT INFORMATION
  Report Type: 
  Country: None (occurrence: None)
  Receive Date: 20091228
  Receipt Date: 20091214
  Transmission Date: 20100525
  Serious: Yes (Hospitalization)
  Sender: FDA-Public Use
  Company Number: 8053493

PATIENT
  Sex: Female
  Weight: 62 kg

DRUGS (6)
  1. XYZALL (XYZALL) [Suspect]
     Indication: HYPERSENSITIVITY
     Dosage: 5 MG,  DAILY ORAL
     Route: 048
     Dates: start: 20090101
  2. OMEPRAZOLE [Suspect]
     Indication: GASTROOESOPHAGEAL REFLUX DISEASE
     Dosage: DAILY  1 UNIT ORAL
     Route: 048
     Dates: start: 20090701
  3. ASCORBIC ACID (TIMOFEROL) [Suspect]
     Indication: ANAEMIA
     Dosage: DAILY 1 UNIT ORAL
     Route: 048
     Dates: start: 20090601, end: 20091007
  4. UVEDOSE (UVEDOSE) [Suspect]
     Indication: PROPHYLAXIS
     Dosage: DAILY
     Dates: start: 20090701
  5. CALCIUM (CALCIUM) [Suspect]
     Indication: BREAST FEEDING
     Dosage: DAILY 1 UNIT ORAL
     Route: 048
     Dates: start: 20090701, end: 20091007
  6. SYNTOCINON [Concomitant]

REACTIONS (5)
  - ANAEMIA [None]
  - DRUG EXPOSURE DURING PREGNANCY [None]
  - FOETAL GROWTH RETARDATION [None]
  - GASTROOESOPHAGEAL REFLUX DISEASE [None]
  - PLACENTAL INFARCTION [None]
